FAERS Safety Report 10027016 (Version 2)
Quarter: 2014Q1

REPORT INFORMATION
  Report Type: Report from Study
  Country: US (occurrence: US)
  Receive Date: 20140321
  Receipt Date: 20140321
  Transmission Date: 20141002
  Serious: Yes (Other)
  Sender: FDA-Public Use
  Company Number: US-ALEXION PHARMACEUTICALS INC.-A201202928

PATIENT
  Sex: 0

DRUGS (2)
  1. SOLIRIS [Suspect]
     Indication: PAROXYSMAL NOCTURNAL HAEMOGLOBINURIA
     Route: 042
  2. SOLIRIS [Suspect]
     Dosage: 600 MG FOR 3 WEEEKS
     Route: 042
     Dates: start: 20120214

REACTIONS (4)
  - Abdominal pain [Unknown]
  - Aplastic anaemia [Unknown]
  - Bone marrow transplant [Unknown]
  - Laboratory test abnormal [Unknown]
